FAERS Safety Report 8193679-2 (Version None)
Quarter: 2012Q1

REPORT INFORMATION
  Report Type: 
  Country: None (occurrence: None)
  Receive Date: 20120308
  Receipt Date: 20120305
  Transmission Date: 20120608
  Serious: Yes (Hospitalization)
  Sender: FDA-Public Use
  Company Number: US-MEDIMMUNE-MEDI-0014860

PATIENT
  Sex: Male
  Weight: 3.374 kg

DRUGS (2)
  1. SYNAGIS [Suspect]
     Route: 030
     Dates: start: 20111231, end: 20111231
  2. IRON SULFATETHIAMIN COMPOUND TAB [Concomitant]

REACTIONS (1)
  - ABDOMINAL DISCOMFORT [None]
